FAERS Safety Report 9242426 (Version 2)
Quarter: 2013Q2

REPORT INFORMATION
  Report Type: Spontaneous
  Country: US (occurrence: US)
  Receive Date: 20130419
  Receipt Date: 20130521
  Transmission Date: 20140414
  Serious: No
  Sender: FDA-Public Use
  Company Number: US-ASTRAZENECA-2011SE54610

PATIENT
  Age: 82 Year
  Sex: Male
  Weight: 78 kg

DRUGS (27)
  1. SYMBICORT [Suspect]
     Indication: MULTIPLE ALLERGIES
     Dosage: 160 MCG, ONE PUFF, BID
     Route: 055
     Dates: start: 2009, end: 2010
  2. SYMBICORT [Suspect]
     Indication: NASAL CONGESTION
     Dosage: 160 MCG, ONE PUFF, BID
     Route: 055
     Dates: start: 2009, end: 2010
  3. SYMBICORT [Suspect]
     Indication: ASTHMA
     Dosage: 160 MCG, ONE PUFF, BID
     Route: 055
     Dates: start: 2009, end: 2010
  4. SYMBICORT [Suspect]
     Indication: BRONCHITIS CHRONIC
     Dosage: 160 MCG, ONE PUFF, BID
     Route: 055
     Dates: start: 2009, end: 2010
  5. SYMBICORT [Suspect]
     Indication: MULTIPLE ALLERGIES
     Dosage: 160/4.5 MCG, ONE PUFF BID
     Route: 055
     Dates: start: 20110811
  6. SYMBICORT [Suspect]
     Indication: NASAL CONGESTION
     Dosage: 160/4.5 MCG, ONE PUFF BID
     Route: 055
     Dates: start: 20110811
  7. SYMBICORT [Suspect]
     Indication: ASTHMA
     Dosage: 160/4.5 MCG, ONE PUFF BID
     Route: 055
     Dates: start: 20110811
  8. SYMBICORT [Suspect]
     Indication: BRONCHITIS CHRONIC
     Dosage: 160/4.5 MCG, ONE PUFF BID
     Route: 055
     Dates: start: 20110811
  9. SYMBICORT [Suspect]
     Indication: MULTIPLE ALLERGIES
     Dosage: 160 MCG, BID
     Route: 055
     Dates: start: 2013, end: 201304
  10. SYMBICORT [Suspect]
     Indication: NASAL CONGESTION
     Dosage: 160 MCG, BID
     Route: 055
     Dates: start: 2013, end: 201304
  11. SYMBICORT [Suspect]
     Indication: ASTHMA
     Dosage: 160 MCG, BID
     Route: 055
     Dates: start: 2013, end: 201304
  12. SYMBICORT [Suspect]
     Indication: BRONCHITIS CHRONIC
     Dosage: 160 MCG, BID
     Route: 055
     Dates: start: 2013, end: 201304
  13. SYMBICORT [Suspect]
     Indication: MULTIPLE ALLERGIES
     Dosage: 160 MCG, BID
     Route: 055
     Dates: start: 20130309
  14. SYMBICORT [Suspect]
     Indication: NASAL CONGESTION
     Dosage: 160 MCG, BID
     Route: 055
     Dates: start: 20130309
  15. SYMBICORT [Suspect]
     Indication: ASTHMA
     Dosage: 160 MCG, BID
     Route: 055
     Dates: start: 20130309
  16. SYMBICORT [Suspect]
     Indication: BRONCHITIS CHRONIC
     Dosage: 160 MCG, BID
     Route: 055
     Dates: start: 20130309
  17. SYMBICORT [Suspect]
     Indication: MULTIPLE ALLERGIES
     Dosage: 160 MCG, BID
     Route: 055
     Dates: start: 20130402
  18. SYMBICORT [Suspect]
     Indication: NASAL CONGESTION
     Dosage: 160 MCG, BID
     Route: 055
     Dates: start: 20130402
  19. SYMBICORT [Suspect]
     Indication: ASTHMA
     Dosage: 160 MCG, BID
     Route: 055
     Dates: start: 20130402
  20. SYMBICORT [Suspect]
     Indication: BRONCHITIS CHRONIC
     Dosage: 160 MCG, BID
     Route: 055
     Dates: start: 20130402
  21. RAMIPRIL [Concomitant]
     Indication: HYPERTENSION
     Dates: start: 2005
  22. RAMIPRIL [Concomitant]
     Indication: BLOOD PRESSURE ABNORMAL
     Dates: start: 2005
  23. RAMIPRIL [Concomitant]
     Indication: HYPERTENSION
  24. RAMIPRIL [Concomitant]
     Indication: BLOOD PRESSURE ABNORMAL
  25. LOVASTATIN [Concomitant]
     Indication: BLOOD CHOLESTEROL ABNORMAL
     Dates: start: 2005
  26. LOVASTATIN [Concomitant]
     Indication: BLOOD CHOLESTEROL ABNORMAL
  27. BABY ASPIRIN [Concomitant]

REACTIONS (5)
  - Dyspnoea [Recovered/Resolved]
  - Intentional drug misuse [Unknown]
  - Off label use [Unknown]
  - Off label use [Unknown]
  - Drug dose omission [Unknown]
